FAERS Safety Report 4688291-3 (Version None)
Quarter: 2005Q2

REPORT INFORMATION
  Report Type: 
  Country: None (occurrence: None)
  Receive Date: 20050610
  Receipt Date: 20050310
  Transmission Date: 20051028
  Serious: Yes (Hospitalization, Other)
  Sender: FDA-Public Use
  Company Number: US-MERCK-0503USA02221

PATIENT
  Age: 49 Year
  Sex: Male
  Weight: 139 kg

DRUGS (16)
  1. VIOXX [Suspect]
     Indication: OSTEOARTHRITIS
     Route: 048
     Dates: start: 20010215, end: 20041015
  2. VIOXX [Suspect]
     Route: 048
     Dates: start: 20010215, end: 20041015
  3. ALEVE [Concomitant]
     Indication: PAIN
     Route: 065
     Dates: start: 19960101, end: 20050315
  4. DARVOCET-N 100 [Concomitant]
     Indication: PAIN
     Route: 065
  5. NOVOLOG [Concomitant]
     Indication: DIABETES MELLITUS
     Route: 065
  6. GLYBURIDE [Concomitant]
     Indication: DIABETES MELLITUS
     Route: 065
  7. ACETAMINOPHEN AND PROPOXYPHENE NAPSYLATE [Concomitant]
     Indication: NARCOLEPSY
     Route: 065
  8. RITALIN [Concomitant]
     Indication: NARCOLEPSY
     Route: 065
  9. FOCALIN [Concomitant]
     Indication: NARCOLEPSY
     Route: 065
  10. NORVASC [Concomitant]
     Indication: HYPERTENSION
     Route: 065
     Dates: start: 20030101, end: 20040101
  11. AVALIDE [Concomitant]
     Indication: HYPERTENSION
     Route: 065
     Dates: start: 20030101
  12. ACTOS [Concomitant]
     Route: 065
  13. PROVIGIL [Concomitant]
     Route: 065
  14. EFFEXOR [Concomitant]
     Route: 065
  15. MOBIC [Concomitant]
     Route: 065
  16. PROZAC [Concomitant]
     Indication: DEPRESSION
     Route: 065
     Dates: start: 20030101

REACTIONS (6)
  - ABDOMINAL PAIN UPPER [None]
  - BLOOD CHOLESTEROL INCREASED [None]
  - CEREBROVASCULAR ACCIDENT [None]
  - EMOTIONAL DISTRESS [None]
  - MYOCARDIAL INFARCTION [None]
  - SLEEP APNOEA SYNDROME [None]
